FAERS Safety Report 6682739-0 (Version None)
Quarter: 2010Q2

REPORT INFORMATION
  Report Type: 
  Country: None (occurrence: None)
  Receive Date: 20100413
  Receipt Date: 20100324
  Transmission Date: 20101027
  Serious: Yes (Other)
  Sender: FDA-Public Use
  Company Number: ALL1-2010-01883

PATIENT
  Age: 68 Year
  Sex: Female

DRUGS (4)
  1. FOSRENOL [Suspect]
     Indication: HYPERPHOSPHATAEMIA
     Dosage: 2000 MG TWICE DAILY AND 1000 MG THREE TIMES DAILY, ORAL
     Route: 048
     Dates: start: 20080101
  2. THYROID THERAPY UNKNOWN [Concomitant]
  3. CARBIDOPA AND LEVODOPA (CARBIDOPA, LEVODOPA) TABLET [Concomitant]
  4. CORVALOL (BROMISOVAL, PHENOBARBITAL SODIUM) TABLET [Concomitant]

REACTIONS (4)
  - BLOOD CALCIUM DECREASED [None]
  - DIARRHOEA [None]
  - HEART RATE INCREASED [None]
  - PROCEDURAL HYPOTENSION [None]
